FAERS Safety Report 7356033-9 (Version None)
Quarter: 2011Q1

REPORT INFORMATION
  Report Type: 
  Country: None (occurrence: None)
  Receive Date: 20110316
  Receipt Date: 20110309
  Transmission Date: 20110831
  Serious: Yes (Other)
  Sender: FDA-Public Use
  Company Number: US-SANOFI-AVENTIS-2011SA014968

PATIENT
  Sex: Male

DRUGS (3)
  1. SOLOSTAR [Suspect]
  2. NOVOLOG [Concomitant]
  3. LANTUS [Suspect]
     Indication: TYPE 2 DIABETES MELLITUS
     Dosage: PRODUCT START DATE: 6-8 YEARS AGO DOSE:45 UNIT(S)
     Route: 058

REACTIONS (2)
  - RETINAL DETACHMENT [None]
  - VISUAL ACUITY REDUCED [None]
